FAERS Safety Report 6590921-6 (Version None)
Quarter: 2010Q1

REPORT INFORMATION
  Report Type: 
  Country: None (occurrence: None)
  Receive Date: 20100219
  Receipt Date: 20100209
  Transmission Date: 20100710
  Serious: Yes (Hospitalization)
  Sender: FDA-Public Use
  Company Number: US-ELI_LILLY_AND_COMPANY-US200702001264

PATIENT
  Sex: Male
  Weight: 206 kg

DRUGS (9)
  1. BYETTA [Suspect]
     Indication: TYPE 2 DIABETES MELLITUS
     Dosage: 5 UG, 2/D
     Route: 058
     Dates: start: 20060101, end: 20060101
  2. BYETTA [Suspect]
     Dosage: 10 UG, 2/D
     Route: 058
     Dates: start: 20060101
  3. ANALGESICS [Concomitant]
     Indication: BACK DISORDER
     Dosage: UNK, UNKNOWN
     Dates: start: 20060101, end: 20060101
  4. AVANDIA [Concomitant]
     Dosage: UNK, UNKNOWN
  5. OXYCODONE [Concomitant]
     Indication: BACK PAIN
     Dosage: 15 MG, 2/D
     Route: 048
  6. FLECTOR                            /00372302/ [Concomitant]
     Indication: BACK PAIN
     Dosage: UNK, AS NEEDED
  7. TIZANIDINE HCL [Concomitant]
     Indication: BACK PAIN
     Dosage: 2 MG, 3/D
     Route: 048
  8. QUINAPRIL [Concomitant]
     Indication: HYPERTENSION
     Dosage: 40 MG, 2/D
     Route: 048
  9. OMEPRAZOLE [Concomitant]
     Indication: DYSPEPSIA
     Dosage: 20 MG, 2/D
     Route: 048

REACTIONS (7)
  - ANKLE FRACTURE [None]
  - DIZZINESS [None]
  - FALL [None]
  - INJECTION SITE EXTRAVASATION [None]
  - INJECTION SITE PAIN [None]
  - INJURY ASSOCIATED WITH DEVICE [None]
  - LOSS OF CONSCIOUSNESS [None]
